FAERS Safety Report 9532165 (Version 1)
Quarter: 2013Q2

REPORT INFORMATION
  Report Type: Spontaneous
  Country: US (occurrence: None)
  Receive Date: 20130503
  Receipt Date: 20130503
  Transmission Date: 20140414
  Serious: Yes (Other)
  Sender: FDA-Public Use
  Company Number: 1000042787

PATIENT
  Age: 70 Year
  Sex: Female
  Weight: 92.99 kg

DRUGS (4)
  1. DALIRESP (ROFLUMILAST) (500 MICROGRAM, TABLETS) [Suspect]
     Indication: CHRONIC OBSTRUCTIVE PULMONARY DISEASE
     Dosage: 500MCG (500 MCG, 1 IN 1 D), ORAL
     Route: 048
     Dates: start: 20130213
  2. VERAPAMIL (VERAPAMIL) (VERAPAMIL) [Concomitant]
  3. SINGULAIR (MONTELUKAST SODIUM) (MONTELUKAST SODIUM) [Concomitant]
  4. ASTRAGALUS (ASTRAGALUS) (ASTRAGALUS) [Concomitant]

REACTIONS (2)
  - Headache [None]
  - Weight decreased [None]
